FAERS Safety Report 15307404 (Version 1)
Quarter: 2018Q3

REPORT INFORMATION
  Report Type: Spontaneous
  Country: US (occurrence: US)
  Receive Date: 20180822
  Receipt Date: 20180822
  Transmission Date: 20181010
  Serious: Yes (Other)
  Sender: FDA-Public Use
  Company Number: US-NAPPMUNDI-USA-2018-0144522

PATIENT
  Age: 56 Year
  Sex: Male

DRUGS (5)
  1. HYDROCODONE [Suspect]
     Active Substance: HYDROCODONE
     Indication: PROCEDURAL PAIN
  2. BUPRENORPHINE TRANSDERMAL PATCH (SIMILAR TO NDA 21?306) [Suspect]
     Active Substance: BUPRENORPHINE
     Indication: PROCEDURAL PAIN
     Dosage: 10 MCG/HR, WEEKLY
     Route: 062
     Dates: start: 2010, end: 201805
  3. HYDROCODONE [Suspect]
     Active Substance: HYDROCODONE
     Indication: INTERVERTEBRAL DISC PROTRUSION
     Dosage: 10 MG, UNK
     Route: 065
     Dates: start: 201805
  4. BUPRENORPHINE TRANSDERMAL PATCH (SIMILAR TO NDA 21?306) [Suspect]
     Active Substance: BUPRENORPHINE
     Indication: PAIN
     Dosage: 5 MCG/HR, WEEKLY
     Route: 062
     Dates: start: 201805
  5. HYDROCODONE [Suspect]
     Active Substance: HYDROCODONE
     Indication: MENISCUS INJURY
     Dosage: 10 MG, UNK
     Route: 065
     Dates: start: 2008, end: 201805

REACTIONS (8)
  - Limb operation [Unknown]
  - Drug withdrawal syndrome [Unknown]
  - Adverse drug reaction [Unknown]
  - Nephrolithiasis [Unknown]
  - Lack of application site rotation [Unknown]
  - Extra dose administered [Unknown]
  - Wrong technique in product usage process [Unknown]
  - Product adhesion issue [Unknown]

NARRATIVE: CASE EVENT DATE: 201509
